FAERS Safety Report 15643159 (Version 1)
Quarter: 2018Q4

REPORT INFORMATION
  Report Type: Spontaneous
  Country: US (occurrence: US)
  Receive Date: 20181121
  Receipt Date: 20181121
  Transmission Date: 20190205
  Serious: Yes (Hospitalization, Other)
  Sender: FDA-Public Use
  Company Number: US-BAYER-2018-212859

PATIENT
  Age: 69 Year
  Sex: Female
  Weight: 139 kg

DRUGS (29)
  1. SODIUM CHLORIDE. [Concomitant]
     Active Substance: SODIUM CHLORIDE
     Dosage: UNK
     Dates: start: 20180124
  2. CALCIUM CARBONATE. [Concomitant]
     Active Substance: CALCIUM CARBONATE
  3. NEXAVAR [Suspect]
     Active Substance: SORAFENIB
     Indication: PRODUCT USED FOR UNKNOWN INDICATION
  4. MIRALAX [Concomitant]
     Active Substance: POLYETHYLENE GLYCOL 3350
  5. SALICYLIC ACID [SALICYLIC ACID] [Concomitant]
  6. LEVOFLOXACIN. [Concomitant]
     Active Substance: LEVOFLOXACIN
  7. ADVAIR HFA [Concomitant]
     Active Substance: FLUTICASONE PROPIONATE\SALMETEROL XINAFOATE
  8. CODEINE [Concomitant]
     Active Substance: CODEINE
  9. BENADRYL [Concomitant]
     Active Substance: DIPHENHYDRAMINE HYDROCHLORIDE
  10. LASIX [Concomitant]
     Active Substance: FUROSEMIDE
  11. ALLOPURINOL. [Concomitant]
     Active Substance: ALLOPURINOL
  12. POTASSIUM CHLORIDE. [Concomitant]
     Active Substance: POTASSIUM CHLORIDE
  13. TRAMADOL. [Concomitant]
     Active Substance: TRAMADOL
  14. POSACONAZOLE [Concomitant]
     Active Substance: POSACONAZOLE
  15. MAGNESIUM SULFATE. [Concomitant]
     Active Substance: MAGNESIUM SULFATE
  16. PREDNISOLONE. [Concomitant]
     Active Substance: PREDNISOLONE
  17. SPIRIVA [Concomitant]
     Active Substance: TIOTROPIUM BROMIDE MONOHYDRATE
  18. LEVOTHYROXINE. [Concomitant]
     Active Substance: LEVOTHYROXINE
     Dosage: UNK
     Dates: start: 20180125
  19. PROTONIX [Concomitant]
     Active Substance: PANTOPRAZOLE SODIUM
  20. MORPHINE [Concomitant]
     Active Substance: MORPHINE
  21. CALCIUM GLUCONATE. [Concomitant]
     Active Substance: CALCIUM GLUCONATE
  22. VITAMIN D [Concomitant]
     Active Substance: CHOLECALCIFEROL
  23. ISOSORBIDE MONONITRATE. [Concomitant]
     Active Substance: ISOSORBIDE MONONITRATE
  24. LOPRESSOR [Concomitant]
     Active Substance: METOPROLOL TARTRATE
  25. ACYCLOVIR ALPHARMA [ACICLOVIR SODIUM] [Concomitant]
     Active Substance: ACYCLOVIR
  26. CHLORHEXIDINE [Concomitant]
     Active Substance: CHLORHEXIDINE
  27. VITAMIN A [Concomitant]
     Active Substance: VITAMIN A
  28. LYRICA [Concomitant]
     Active Substance: PREGABALIN
  29. AMICAR [Concomitant]
     Active Substance: AMINOCAPROIC ACID

REACTIONS (3)
  - Blood creatinine abnormal [Recovered/Resolved with Sequelae]
  - Hypocalcaemia [Recovered/Resolved with Sequelae]
  - Renal tubular necrosis [Not Recovered/Not Resolved]

NARRATIVE: CASE EVENT DATE: 20180316
